FAERS Safety Report 13167114 (Version 1)
Quarter: 2017Q1

REPORT INFORMATION
  Report Type: Report from Study
  Country: DE (occurrence: DE)
  Receive Date: 20170131
  Receipt Date: 20170131
  Transmission Date: 20170428
  Serious: Yes (Hospitalization)
  Sender: FDA-Public Use
  Company Number: DE-EMD SERONO-8137026

PATIENT
  Age: 39 Year
  Sex: Female

DRUGS (3)
  1. REBIF [Suspect]
     Active Substance: INTERFERON BETA-1A
     Indication: MULTIPLE SCLEROSIS
     Dates: start: 201607, end: 20170111
  2. PENICILLIN                         /00000901/ [Suspect]
     Active Substance: PENICILLIN G
     Indication: PHARYNGITIS
     Route: 048
     Dates: start: 20161228, end: 20170103
  3. CITALOPRAM [Concomitant]
     Active Substance: CITALOPRAM HYDROBROMIDE
     Indication: ANXIETY DISORDER
     Route: 048
     Dates: start: 201403

REACTIONS (2)
  - Oropharyngeal pain [Not Recovered/Not Resolved]
  - Erythema nodosum [Recovering/Resolving]

NARRATIVE: CASE EVENT DATE: 201612
